FAERS Safety Report 17629620 (Version 2)
Quarter: 2020Q2

REPORT INFORMATION
  Report Type: Report from Study
  Country: GB (occurrence: GB)
  Receive Date: 20200406
  Receipt Date: 20200416
  Transmission Date: 20200713
  Serious: Yes (Life-Threatening, Hospitalization, Other)
  Sender: FDA-Public Use
  Company Number: GB-TEVA-2020-GB-1218758

PATIENT
  Age: 8 Year
  Sex: Male
  Weight: 17 kg

DRUGS (8)
  1. CYCLOPHOSPHAMIDE. [Suspect]
     Active Substance: CYCLOPHOSPHAMIDE
     Indication: NEUROBLASTOMA
     Dosage: ON DAY 0 AND DAY 1
     Route: 065
  2. DOXORUBICIN [Suspect]
     Active Substance: DOXORUBICIN
     Indication: NEUROBLASTOMA
     Dosage: FOR 3 DAYS
     Route: 065
  3. CISPLATIN. [Suspect]
     Active Substance: CISPLATIN
     Indication: NEUROBLASTOMA
     Dosage: ON DAYS 0-3
     Route: 065
  4. FOSCARNET [Suspect]
     Active Substance: FOSCARNET
     Indication: VARICELLA ZOSTER VIRUS INFECTION
     Route: 065
  5. ACICLOVIR [Suspect]
     Active Substance: ACYCLOVIR
     Indication: VARICELLA ZOSTER VIRUS INFECTION
     Route: 042
  6. CIDOFOVIR. [Suspect]
     Active Substance: CIDOFOVIR
     Indication: VARICELLA ZOSTER VIRUS INFECTION
     Route: 065
  7. VINCRISTINE [Suspect]
     Active Substance: VINCRISTINE
     Indication: NEUROBLASTOMA
     Dosage: FOR 3 DAYS
     Route: 065
  8. ETOPOSIDE. [Suspect]
     Active Substance: ETOPOSIDE
     Indication: NEUROBLASTOMA
     Dosage: ON DAYS 0-2
     Route: 065

REACTIONS (5)
  - Pericardial effusion [Unknown]
  - Cardiac dysfunction [Unknown]
  - Drug ineffective [Unknown]
  - Renal impairment [Unknown]
  - Varicella zoster virus infection [Recovered/Resolved]
